FAERS Safety Report 9770504 (Version 1)
Quarter: 2013Q4

REPORT INFORMATION
  Report Type: Spontaneous
  Country: US (occurrence: US)
  Receive Date: 20131218
  Receipt Date: 20131218
  Transmission Date: 20140711
  Serious: No
  Sender: FDA-Public Use
  Company Number: US-BIOGENIDEC-2013BI120459

PATIENT
  Sex: Female

DRUGS (9)
  1. TECFIDERA [Suspect]
     Indication: MULTIPLE SCLEROSIS
     Route: 048
  2. ABILIFY [Concomitant]
  3. ADDERALL [Concomitant]
  4. CITALOPRAM HYDROBROMIDE [Concomitant]
  5. CLONAZEPAM [Concomitant]
  6. FEMRING [Concomitant]
  7. MEDROXYPROGESTERONE ACETATE [Concomitant]
  8. MELOXICAM [Concomitant]
  9. OMEPRAZOLE [Concomitant]

REACTIONS (1)
  - Gastrooesophageal reflux disease [Not Recovered/Not Resolved]
